FAERS Safety Report 10360596 (Version 2)
Quarter: 2014Q3

REPORT INFORMATION
  Report Type: Spontaneous
  Country: DK (occurrence: DK)
  Receive Date: 20140804
  Receipt Date: 20140804
  Transmission Date: 20150326
  Serious: Yes (Hospitalization, Disabling)
  Sender: FDA-Public Use
  Company Number: PHHY2014DK053685

PATIENT
  Age: 25 Year
  Sex: Female
  Weight: 67 kg

DRUGS (3)
  1. HARMONET [Suspect]
     Active Substance: ETHINYL ESTRADIOL\GESTODENE
     Indication: CONTRACEPTION
  2. GESTONETTE [Suspect]
     Active Substance: ETHINYL ESTRADIOL\GESTODENE
     Indication: CONTRACEPTION
     Dosage: 1 DF, QD
     Dates: start: 20021202, end: 20130320
  3. GESTONETTE [Suspect]
     Active Substance: ETHINYL ESTRADIOL\GESTODENE
     Dosage: 1 DF, QD

REACTIONS (6)
  - Pain in extremity [Unknown]
  - Lung infiltration [Unknown]
  - Thrombosis [Recovered/Resolved]
  - Tension [Unknown]
  - Pulmonary embolism [Recovered/Resolved with Sequelae]
  - Swelling [Unknown]

NARRATIVE: CASE EVENT DATE: 20130320
